FAERS Safety Report 5578178-6 (Version None)
Quarter: 2007Q4

REPORT INFORMATION
  Report Type: 
  Country: None (occurrence: None)
  Receive Date: 20071231
  Receipt Date: 20071219
  Transmission Date: 20080405
  Serious: Yes (Hospitalization)
  Sender: FDA-Public Use
  Company Number: FR-PFIZER INC-2007107971

PATIENT
  Age: 55 Year
  Sex: Female

DRUGS (9)
  1. TAHOR [Suspect]
     Indication: HYPERCHOLESTEROLAEMIA
  2. KARDEGIC [Concomitant]
  3. BIPRETERAX [Concomitant]
  4. COVERSYL [Concomitant]
  5. INEXIUM [Concomitant]
  6. IMOVANE [Concomitant]
  7. LANTUS [Concomitant]
  8. HUMALOG [Concomitant]
  9. ATENOLOL [Concomitant]

REACTIONS (2)
  - INTERMITTENT CLAUDICATION [None]
  - PAIN IN EXTREMITY [None]
